FAERS Safety Report 6772796-5 (Version None)
Quarter: 2010Q2

REPORT INFORMATION
  Report Type: 
  Country: None (occurrence: None)
  Receive Date: 20100616
  Receipt Date: 20100609
  Transmission Date: 20101027
  Serious: Yes (Death, Hospitalization)
  Sender: FDA-Public Use
  Company Number: GXKR2010GB05636

PATIENT
  Age: 87 Year
  Sex: Female

DRUGS (11)
  1. SIMVASTATIN [Suspect]
     Indication: HYPERCHOLESTEROLAEMIA
     Dosage: 40 MG, QD
     Route: 048
     Dates: start: 20100114, end: 20100319
  2. NORFLOXACIN [Suspect]
     Dosage: 2 DF, UNK
  3. ACETYLSALICYLIC ACID [Concomitant]
     Dosage: 75 MG, QD
     Route: 065
  4. BISOPROLOL [Concomitant]
     Dosage: 5 MG, QD
     Route: 065
  5. CITALOPRAM HYDROBROMIDE [Concomitant]
     Dosage: 20 MG, QD
     Route: 065
  6. ACETAMINOPHEN AND CODEINE PHOSPHATE [Concomitant]
     Dosage: 2 DF, QID
     Route: 065
  7. FRUSEMIDE [Concomitant]
     Dosage: 80 MG, QD
     Route: 065
  8. GLYCERYL TRINITRATE [Concomitant]
     Dosage: 2 DF, QD
     Route: 065
  9. ISOSORBIDE [Concomitant]
     Dosage: 60 MG, BID
     Route: 065
  10. MADOPAR [Concomitant]
     Dosage: 4 DF, QID
     Route: 065
  11. PERINDOPRIL [Concomitant]
     Dosage: 4 MG, QD
     Route: 065

REACTIONS (6)
  - CARDIAC FAILURE [None]
  - MOBILITY DECREASED [None]
  - MYALGIA [None]
  - PNEUMONIA [None]
  - RENAL FAILURE ACUTE [None]
  - RHABDOMYOLYSIS [None]
